FAERS Safety Report 4927579-5 (Version None)
Quarter: 2006Q1

REPORT INFORMATION
  Report Type: 
  Country: None (occurrence: None)
  Receive Date: 20060228
  Receipt Date: 20060216
  Transmission Date: 20060701
  Serious: Yes (Hospitalization)
  Sender: FDA-Public Use
  Company Number: PHRM2006FR00799

PATIENT
  Age: 73 Year
  Sex: Male

DRUGS (10)
  1. GLEEVEC [Suspect]
     Indication: CHRONIC MYELOID LEUKAEMIA
     Dosage: 400 MG DAILY
     Route: 048
     Dates: start: 20050411
  2. ALDACTONE [Suspect]
     Dosage: 2.5 DF, QW
     Route: 048
  3. MODAMIDE [Suspect]
     Dosage: 2 DF DAILY
     Route: 048
  4. KARDEGIC [Suspect]
     Dosage: 1 DF DAILY
     Route: 048
  5. TRIATEC [Suspect]
     Dosage: 1.25 MG DAILY
     Route: 048
  6. LOGIMAX [Suspect]
     Dosage: 5 MG/47.5 MG PER DAY
     Route: 048
  7. URION [Concomitant]
  8. MAG 2 [Concomitant]
  9. NUCTALON [Concomitant]
  10. DIFFU K [Concomitant]

REACTIONS (5)
  - HYPERKERATOSIS [None]
  - LICHENIFICATION [None]
  - LICHENOID KERATOSIS [None]
  - PRURITUS [None]
  - TOXIC SKIN ERUPTION [None]
